FAERS Safety Report 10477914 (Version 1)
Quarter: 2014Q3

REPORT INFORMATION
  Report Type: Spontaneous
  Country: CL (occurrence: CL)
  Receive Date: 20140926
  Receipt Date: 20140926
  Transmission Date: 20150326
  Serious: Yes (Other)
  Sender: FDA-Public Use
  Company Number: CL-009507513-1409CHL008689

PATIENT
  Sex: Female

DRUGS (2)
  1. NUVARING [Suspect]
     Active Substance: ETHINYL ESTRADIOL\ETONOGESTREL
     Indication: CONTRACEPTION
     Dosage: DELIVERES 0.12MG/0.015MG PER DAY; FREQUENCY: MONTHLY
     Route: 067
     Dates: start: 20140805, end: 20140807
  2. NUVARING [Suspect]
     Active Substance: ETHINYL ESTRADIOL\ETONOGESTREL
     Dosage: DELIVERES 0.12MG/0.015MG PER DAY; FREQUENCY: MONTHLY
     Route: 067
     Dates: start: 20140828

REACTIONS (3)
  - Metrorrhagia [Recovered/Resolved]
  - Surgery [Unknown]
  - Incorrect drug administration duration [Unknown]

NARRATIVE: CASE EVENT DATE: 20140807
